FAERS Safety Report 10621558 (Version 5)
Quarter: 2015Q4

REPORT INFORMATION
  Report Type: Report from Study
  Country: US (occurrence: US)
  Receive Date: 20141203
  Receipt Date: 20151224
  Transmission Date: 20160304
  Serious: Yes (Hospitalization, Other)
  Sender: FDA-Public Use
  Company Number: US-UCBSA-2014019800

PATIENT
  Age: 81 Year
  Sex: Male
  Weight: 108 kg

DRUGS (5)
  1. KEPPRA [Suspect]
     Active Substance: LEVETIRACETAM
     Indication: SEIZURE
     Dosage: 1000 MG, 2X/DAY (BID) (AT 1 AM AND AT 1 PM)
     Route: 048
     Dates: start: 20141014, end: 20150518
  2. LEVETIRACETAM. [Concomitant]
     Active Substance: LEVETIRACETAM
     Indication: PRODUCT USED FOR UNKNOWN INDICATION
     Dosage: 1250 MG, UNK
  3. KEPPRA [Suspect]
     Active Substance: LEVETIRACETAM
     Dosage: 1000 MG AT 1 AM+ 1000 MG AT 1PM + 250 MG
     Dates: start: 20150519
  4. LACOSAMIDE [Suspect]
     Active Substance: LACOSAMIDE
     Indication: SEIZURE
     Dosage: 200 MG, 2X/DAY (BID)
     Route: 048
     Dates: start: 20141014
  5. TAMSULOSIN [Concomitant]
     Active Substance: TAMSULOSIN
     Indication: PROSTATOMEGALY
     Dosage: 4 MG, 2X/DAY (BID)
     Route: 048
     Dates: start: 201410

REACTIONS (7)
  - Limb injury [Recovered/Resolved]
  - Skin cancer [Recovered/Resolved]
  - Hypersomnia [Recovering/Resolving]
  - Fall [Recovered/Resolved]
  - Cataract [Recovered/Resolved]
  - Pain in extremity [Recovered/Resolved]
  - Herpes zoster [Recovered/Resolved]

NARRATIVE: CASE EVENT DATE: 20141018
